FAERS Safety Report 16728809 (Version 3)
Quarter: 2019Q3

REPORT INFORMATION
  Report Type: Report from Study
  Country: HK (occurrence: HK)
  Receive Date: 20190822
  Receipt Date: 20190927
  Transmission Date: 20191005
  Serious: Yes (Death, Hospitalization)
  Sender: FDA-Public Use
  Company Number: HK-ROCHE-2383555

PATIENT
  Age: 70 Year
  Sex: Female

DRUGS (5)
  1. CARBOPLATIN. [Suspect]
     Active Substance: CARBOPLATIN
     Indication: NON-SMALL CELL LUNG CANCER METASTATIC
     Dosage: 550MG INTO 250ML NS INFUSION
     Route: 042
     Dates: start: 20181211, end: 20190213
  2. PEMETREXED. [Suspect]
     Active Substance: PEMETREXED
     Indication: NON-SMALL CELL LUNG CANCER METASTATIC
     Dosage: 810MG INTO 100ML NS INFUSION
     Route: 042
     Dates: start: 20181211, end: 20190529
  3. LEVOFLOXACIN. [Concomitant]
     Active Substance: LEVOFLOXACIN
     Route: 065
     Dates: start: 20190723
  4. BEVACIZUMAB. [Suspect]
     Active Substance: BEVACIZUMAB
     Indication: NON-SMALL CELL LUNG CANCER METASTATIC
     Dosage: ADMINISTERED OVER 90 MINUTES (1ST CYCLE), 60 MINUTES (2ND CYCLE) AND 30 MINUTES (3RD CYCLE ONWARDS)
     Route: 042
     Dates: start: 20181211, end: 20190529
  5. ATEZOLIZUMAB. [Suspect]
     Active Substance: ATEZOLIZUMAB
     Indication: NON-SMALL CELL LUNG CANCER METASTATIC
     Dosage: ADMINISTERED OVER 60 MINUTES (1ST CYCLE) AND 30 MINUTES (2ND CYCLE ONWARDS) INTRAVENOUSLY (AS PER PR
     Route: 042
     Dates: start: 20181211, end: 20190618

REACTIONS (4)
  - Dyspnoea [Recovered/Resolved]
  - Pyrexia [Recovered/Resolved]
  - Metastases to meninges [Recovered/Resolved with Sequelae]
  - Lower respiratory tract infection [Recovered/Resolved with Sequelae]

NARRATIVE: CASE EVENT DATE: 20190711
